FAERS Safety Report 18189207 (Version 1)
Quarter: 2020Q3

REPORT INFORMATION
  Report Type: Spontaneous
  Country: US (occurrence: US)
  Receive Date: 20200824
  Receipt Date: 20200824
  Transmission Date: 20201103
  Serious: No
  Sender: FDA-Public Use
  Company Number: US-PERRIGO-19US011015

PATIENT
  Age: 31 Year
  Sex: Male
  Weight: 54.42 kg

DRUGS (1)
  1. NICOTINE POLACRILEX [Suspect]
     Active Substance: NICOTINE
     Indication: SMOKING CESSATION THERAPY
     Dosage: 2 MG, EVERY 4 TO 5 HOURS
     Route: 002
     Dates: start: 20190901, end: 20190906

REACTIONS (4)
  - Hypoaesthesia oral [Recovered/Resolved]
  - Oral discomfort [Recovered/Resolved]
  - Nausea [Recovered/Resolved]
  - Dizziness [Recovered/Resolved]

NARRATIVE: CASE EVENT DATE: 20190901
